FAERS Safety Report 16298361 (Version 9)
Quarter: 2020Q2

REPORT INFORMATION
  Report Type: Spontaneous
  Country: KR (occurrence: KR)
  Receive Date: 20190510
  Receipt Date: 20200403
  Transmission Date: 20200713
  Serious: Yes (Hospitalization, Other)
  Sender: FDA-Public Use
  Company Number: KR-009507513-1905KOR002838

PATIENT
  Sex: Female

DRUGS (1)
  1. IMPLANON NXT [Suspect]
     Active Substance: ETONOGESTREL
     Indication: CONTRACEPTION
     Dosage: 1 IMPLANT, LEFT LOWER ARM
     Route: 059
     Dates: start: 20190503, end: 20190705

REACTIONS (10)
  - Implant site haemorrhage [Unknown]
  - Complication associated with device [Recovered/Resolved]
  - Vaginal haemorrhage [Unknown]
  - Product quality issue [Unknown]
  - Emotional distress [Unknown]
  - Alopecia [Unknown]
  - Pain [Unknown]
  - Device embolisation [Recovered/Resolved]
  - Device dislocation [Recovered/Resolved]
  - Scar excision [Unknown]

NARRATIVE: CASE EVENT DATE: 2019
